FAERS Safety Report 24589768 (Version 3)
Quarter: 2025Q2

REPORT INFORMATION
  Report Type: Report from Study
  Country: US (occurrence: US)
  Receive Date: 20241107
  Receipt Date: 20250506
  Transmission Date: 20250717
  Serious: No
  Sender: AMGEN
  Company Number: US-AMGEN-USASP2024218654

PATIENT
  Age: 57 Year
  Sex: Female

DRUGS (2)
  1. KRYSTEXXA [Suspect]
     Active Substance: PEGLOTICASE
     Indication: Gouty tophus
     Dosage: UNK UNK, Q2WK (EVERY 2 WEEKS )
     Route: 040
     Dates: start: 20240930
  2. KRYSTEXXA [Suspect]
     Active Substance: PEGLOTICASE
     Dosage: UNK UNK, Q2WK (EVERY 2 WEEKS )
     Route: 040
     Dates: start: 20241219

REACTIONS (8)
  - Anxiety [Unknown]
  - Blood uric acid increased [Unknown]
  - Back pain [Not Recovered/Not Resolved]
  - Blister [Recovering/Resolving]
  - Swelling [Recovering/Resolving]
  - Bone pain [Unknown]
  - Skin irritation [Recovering/Resolving]
  - Arthralgia [Not Recovered/Not Resolved]

NARRATIVE: CASE EVENT DATE: 20240101
